FAERS Safety Report 4550982-2 (Version None)
Quarter: 2005Q1

REPORT INFORMATION
  Report Type: 
  Country: None (occurrence: None)
  Receive Date: 20050113
  Receipt Date: 20050106
  Transmission Date: 20050727
  Serious: Yes (Death, Hospitalization)
  Sender: FDA-Public Use
  Company Number: PHBS2005IE00534

PATIENT
  Age: 39 Year
  Sex: Male

DRUGS (1)
  1. LAMISIL [Suspect]
     Indication: FUNGAL INFECTION
     Route: 048
     Dates: start: 20040816

REACTIONS (4)
  - ARRHYTHMIA [None]
  - DRUG ABUSER [None]
  - NAUSEA [None]
  - PALPITATIONS [None]
